FAERS Safety Report 21790887 (Version 1)
Quarter: 2022Q4

REPORT INFORMATION
  Report Type: Spontaneous
  Country: US (occurrence: None)
  Receive Date: 20221227
  Receipt Date: 20221227
  Transmission Date: 20230113
  Serious: Yes (Hospitalization)
  Sender: FDA-Public Use
  Company Number: None

PATIENT
  Sex: Male

DRUGS (6)
  1. PULMOZYME [Suspect]
     Active Substance: DORNASE ALFA
     Indication: Cystic fibrosis
     Route: 055
     Dates: start: 20160204
  2. COMPLETE FORM D500 SOFTGEL [Concomitant]
  3. LEVALBUTEROL [Concomitant]
     Active Substance: LEVALBUTEROL
  4. PREVACID CAP [Concomitant]
  5. TOBRAMYCIN [Concomitant]
     Active Substance: TOBRAMYCIN
  6. ZYRTEC CHILD TAB [Concomitant]

REACTIONS (2)
  - Infection [None]
  - Dyspnoea [None]
